FAERS Safety Report 7719302-6 (Version None)
Quarter: 2011Q3

REPORT INFORMATION
  Report Type: 
  Country: None (occurrence: None)
  Receive Date: 20110830
  Receipt Date: 20110819
  Transmission Date: 20111222
  Serious: Yes (Hospitalization)
  Sender: FDA-Public Use
  Company Number: ZA-JNJFOC-20110803741

PATIENT
  Sex: Male

DRUGS (9)
  1. REVELLEX [Suspect]
     Indication: RHEUMATOID ARTHRITIS
     Route: 042
     Dates: start: 20070601
  2. COVOCORT [Concomitant]
     Indication: RHEUMATOID ARTHRITIS
     Route: 048
  3. PAROXETINE HCL [Concomitant]
     Indication: DEPRESSION
     Route: 065
  4. METHOTREXATE [Concomitant]
     Indication: RHEUMATOID ARTHRITIS
     Route: 048
     Dates: start: 20030101
  5. FOLIC ACID [Concomitant]
     Indication: PROPHYLAXIS
     Route: 048
     Dates: start: 20030101
  6. SEREPAX [Concomitant]
     Indication: DEPRESSION
     Route: 065
  7. REVELLEX [Suspect]
     Route: 042
     Dates: start: 20110325
  8. OTHER THERAPEUTIC PRODUCT UNSPECIFIED [Concomitant]
     Indication: RHEUMATOID ARTHRITIS
     Route: 065
     Dates: start: 20030101
  9. ASACOL [Concomitant]
     Indication: COLITIS ULCERATIVE
     Route: 065

REACTIONS (3)
  - SINUSITIS [None]
  - MALAISE [None]
  - PNEUMONIA [None]
